FAERS Safety Report 13906519 (Version 1)
Quarter: 2017Q3

REPORT INFORMATION
  Report Type: Spontaneous
  Country: FR (occurrence: FR)
  Receive Date: 20170825
  Receipt Date: 20170825
  Transmission Date: 20171127
  Serious: Yes (Other)
  Sender: FDA-Public Use
  Company Number: FR-BAYER-2017-160683

PATIENT
  Age: 40 Year
  Sex: Female

DRUGS (1)
  1. MIRENA [Suspect]
     Active Substance: LEVONORGESTREL
     Indication: CONTRACEPTION
     Dosage: 20 ?G, CONT
     Route: 015
     Dates: start: 20140401, end: 20150408

REACTIONS (6)
  - Visual impairment [Unknown]
  - Pain in extremity [Unknown]
  - Vertigo [Unknown]
  - Headache [Unknown]
  - Uterine polyp [Unknown]
  - Fatigue [Unknown]

NARRATIVE: CASE EVENT DATE: 201405
